FAERS Safety Report 20747689 (Version 1)
Quarter: 2022Q2

REPORT INFORMATION
  Report Type: Spontaneous
  Country: US (occurrence: US)
  Receive Date: 20220425
  Receipt Date: 20220425
  Transmission Date: 20220720
  Serious: No
  Sender: FDA-Public Use
  Company Number: US-SANOFI-01070863

PATIENT
  Sex: Female

DRUGS (1)
  1. NASACORT ALLERGY 24HR [Suspect]
     Active Substance: TRIAMCINOLONE ACETONIDE
     Indication: Sinusitis
     Dosage: UNK
     Route: 045

REACTIONS (3)
  - Hypersensitivity [Unknown]
  - Oral infection [Unknown]
  - Oral discomfort [Unknown]
